FAERS Safety Report 4680327-9 (Version None)
Quarter: 2005Q2

REPORT INFORMATION
  Report Type: 
  Country: None (occurrence: None)
  Receive Date: 20050601
  Receipt Date: 20050524
  Transmission Date: 20051028
  Serious: Yes (Other)
  Sender: FDA-Public Use
  Company Number: SE-2005-008884

PATIENT
  Age: 38 Year
  Sex: Female

DRUGS (1)
  1. LEVONORGESTREL [Suspect]
     Indication: CONTRACEPTION
     Dosage: 20 UG/DAY, CONT, INTRA-UTERINE
     Route: 015
     Dates: start: 19991025, end: 20031003

REACTIONS (5)
  - BODY TEMPERATURE INCREASED [None]
  - BREAST CANCER METASTATIC [None]
  - DEPRESSION [None]
  - PAIN [None]
  - SWELLING [None]
